FAERS Safety Report 4532336-8 (Version None)
Quarter: 2004Q4

REPORT INFORMATION
  Report Type: 
  Country: None (occurrence: None)
  Receive Date: 20041217
  Receipt Date: 20041207
  Transmission Date: 20050328
  Serious: Yes (Hospitalization, Other)
  Sender: FDA-Public Use
  Company Number: 2004047431

PATIENT
  Sex: Male
  Weight: 97.5234 kg

DRUGS (13)
  1. TIKOSYN [Suspect]
     Indication: ATRIAL FIBRILLATION
     Dosage: 1000 MCG (500 MCG, 2 IN 1 D), ORAL
     Route: 048
     Dates: start: 20020101
  2. BEXTRA [Suspect]
     Indication: RHEUMATOID ARTHRITIS
     Dosage: 20 MG (20 MG, QD INTERVAL: EVERY DAY), ORAL
     Route: 048
     Dates: start: 20040101
  3. VIOXX [Suspect]
     Indication: RHEUMATOID ARTHRITIS
     Dosage: ORAL
     Route: 048
  4. HYDROCODONE (HYDROCODONE) [Suspect]
     Indication: PAIN
  5. DILTIAZEM [Concomitant]
  6. LOSARTAN POTASSIUM [Concomitant]
  7. LISINOPRIL [Concomitant]
  8. WARFARIN (WARFARIN) [Concomitant]
  9. OMEPRAZOLE [Concomitant]
  10. ROFECOXIB [Concomitant]
  11. SIMVASTATIN [Concomitant]
  12. HYDROCODONE (HYDROCODONE) [Concomitant]
  13. VITAMINS (VITAMINS) [Concomitant]

REACTIONS (20)
  - ACTIVITIES OF DAILY LIVING IMPAIRED [None]
  - ASTHENIA [None]
  - ATRIAL FIBRILLATION [None]
  - BLOOD ELECTROLYTES DECREASED [None]
  - BLOOD PRESSURE INCREASED [None]
  - BLOOD TEST ABNORMAL [None]
  - DIFFICULTY IN WALKING [None]
  - DIZZINESS [None]
  - DRUG INEFFECTIVE [None]
  - DRUG INTERACTION [None]
  - FATIGUE [None]
  - FEELING ABNORMAL [None]
  - GASTROENTERITIS VIRAL [None]
  - HYPERHIDROSIS [None]
  - INFLUENZA LIKE ILLNESS [None]
  - MALAISE [None]
  - PAIN EXACERBATED [None]
  - POLYMYALGIA RHEUMATICA [None]
  - SOMNOLENCE [None]
  - WEIGHT DECREASED [None]
